FAERS Safety Report 14191212 (Version 3)
Quarter: 2017Q4

REPORT INFORMATION
  Report Type: Report from Study
  Country: US (occurrence: US)
  Receive Date: 20171115
  Receipt Date: 20171127
  Transmission Date: 20180321
  Serious: Yes (Hospitalization)
  Sender: FDA-Public Use
  Company Number: US-JNJFOC-20171115234

PATIENT
  Age: 14 Year
  Sex: Male
  Weight: 64.5 kg

DRUGS (4)
  1. METHOTREXATE. [Concomitant]
     Active Substance: METHOTREXATE
     Route: 065
  2. REMICADE [Suspect]
     Active Substance: INFLIXIMAB
     Indication: COLITIS ULCERATIVE
     Route: 042
     Dates: start: 20170830
  3. REMICADE [Suspect]
     Active Substance: INFLIXIMAB
     Indication: COLITIS ULCERATIVE
     Route: 042
     Dates: start: 20160226
  4. FERROUS SULFATE. [Concomitant]
     Active Substance: FERROUS SULFATE
     Route: 065

REACTIONS (1)
  - Viral infection [Recovered/Resolved]

NARRATIVE: CASE EVENT DATE: 20171008
